FAERS Safety Report 4648624-0 (Version None)
Quarter: 2005Q2

REPORT INFORMATION
  Report Type: 
  Country: None (occurrence: None)
  Receive Date: 20050429
  Receipt Date: 20040312
  Transmission Date: 20051028
  Serious: No
  Sender: FDA-Public Use
  Company Number: 200305611

PATIENT
  Age: 47 Year
  Sex: Female

DRUGS (3)
  1. AMERGE [Suspect]
     Indication: HEADACHE
     Route: 048
     Dates: start: 20030408, end: 20031006
  2. EXTRA STRENGTH TYLENOL [Suspect]
     Indication: HEADACHE
     Dosage: 1000MG TWICE PER DAY
     Route: 048
     Dates: start: 20021008
  3. CLARITIN-D [Suspect]
     Indication: MULTIPLE ALLERGIES
     Route: 048
     Dates: start: 20030408, end: 20040227

REACTIONS (1)
  - DIZZINESS POSTURAL [None]
